FAERS Safety Report 13195583 (Version 2)
Quarter: 2017Q1

REPORT INFORMATION
  Report Type: Spontaneous
  Country: US (occurrence: US)
  Receive Date: 20170208
  Receipt Date: 20170303
  Transmission Date: 20170428
  Serious: No
  Sender: FDA-Public Use
  Company Number: US-ASTRAZENECA-2017SE11757

PATIENT
  Age: 747 Month
  Sex: Female
  Weight: 68 kg

DRUGS (8)
  1. MOVANTIK [Suspect]
     Active Substance: NALOXEGOL OXALATE
     Indication: CONSTIPATION
     Dosage: SHE ONLY TOOK ONE A DAY, BUT NOT EVERYDAY.
     Route: 048
     Dates: start: 201609
  2. MOVANTIK [Suspect]
     Active Substance: NALOXEGOL OXALATE
     Indication: CONSTIPATION
     Route: 048
     Dates: start: 201609, end: 201609
  3. STOOL SOFTENER (DOCUSATE) [Concomitant]
     Active Substance: DOCUSATE
     Dosage: UNKNOWN
     Route: 065
  4. METHADONE [Concomitant]
     Active Substance: METHADONE HYDROCHLORIDE
     Indication: PAIN
     Route: 048
     Dates: start: 2007
  5. OXYCODONE [Concomitant]
     Active Substance: OXYCODONE
     Indication: PAIN
     Route: 048
     Dates: start: 2014
  6. MOVANTIK [Suspect]
     Active Substance: NALOXEGOL OXALATE
     Indication: CONSTIPATION
     Dosage: 25.0MG UNKNOWN
     Route: 048
  7. EX-LAX MAXIMUM STRENGTH [Concomitant]
     Route: 065
  8. BLUE PILL [Concomitant]
     Indication: PAIN
     Route: 065

REACTIONS (9)
  - Arthritis [Unknown]
  - Off label use [Unknown]
  - Sciatica [Unknown]
  - Abdominal discomfort [Unknown]
  - Drug dose omission [Unknown]
  - Cataract [Unknown]
  - Weight loss poor [Unknown]
  - Bowel movement irregularity [Unknown]
  - Intentional product misuse [Unknown]

NARRATIVE: CASE EVENT DATE: 201609
